FAERS Safety Report 23914796 (Version 3)
Quarter: 2024Q3

REPORT INFORMATION
  Report Type: Spontaneous
  Country: IL (occurrence: IL)
  Receive Date: 20240529
  Receipt Date: 20240807
  Transmission Date: 20241017
  Serious: Yes (Hospitalization)
  Sender: NOVARTIS
  Company Number: IL-002147023-NVSC2024IL109245

PATIENT
  Age: 20 Year
  Sex: Female

DRUGS (1)
  1. KESIMPTA [Suspect]
     Active Substance: OFATUMUMAB
     Indication: Product used for unknown indication
     Dosage: UNK (4 INJECTIONS)
     Route: 065

REACTIONS (4)
  - Injury [Recovering/Resolving]
  - Condition aggravated [Recovering/Resolving]
  - Muscular weakness [Unknown]
  - Lymphocyte count decreased [Unknown]
